FAERS Safety Report 26011366 (Version 1)
Quarter: 2025Q4

REPORT INFORMATION
  Report Type: Report from Study
  Country: CA (occurrence: CA)
  Receive Date: 20251107
  Receipt Date: 20251107
  Transmission Date: 20260118
  Serious: No
  Sender: BIOGEN
  Company Number: CA-BIOGEN-2022BI01118183

PATIENT
  Age: 42 Year
  Sex: Male

DRUGS (2)
  1. TYSABRI [Suspect]
     Active Substance: NATALIZUMAB
     Indication: Multiple sclerosis
     Dosage: DOSAGE TEXT:Q (EVERY) 4-8 WEEKS?FF01521,FF01873?(BATCH LOT NUMBER: FF02655 AND LOT EXPIRATION DATE: 28-FEB-2027)
     Dates: start: 20201021
  2. TYSABRI [Suspect]
     Active Substance: NATALIZUMAB

REACTIONS (11)
  - Prescribed underdose [Not Recovered/Not Resolved]
  - Rhinorrhoea [Not Recovered/Not Resolved]
  - Multiple sclerosis [Unknown]
  - Fatigue [Unknown]
  - Diplopia [Not Recovered/Not Resolved]
  - Depression [Not Recovered/Not Resolved]
  - Sinus congestion [Not Recovered/Not Resolved]
  - Visual impairment [Not Recovered/Not Resolved]
  - Sinusitis [Not Recovered/Not Resolved]
  - Viral infection [Unknown]
  - Rash macular [Unknown]

NARRATIVE: CASE EVENT DATE: 20201021
